FAERS Safety Report 8731742 (Version 2)
Quarter: 2012Q4

REPORT INFORMATION
  Report Type: 
  Country: US (occurrence: US)
  Receive Date: 20120820
  Receipt Date: 20120918
  Transmission Date: 20130627
  Serious: No
  Sender: FDA-Public Use
  Company Number: US-BAYER-2012-083046

PATIENT
  Age: 26 Year
  Sex: Female
  Weight: 103.86 kg

DRUGS (2)
  1. MIRENA [Suspect]
     Indication: CONTRACEPTION
     Dosage: 20 mcg/24hr, CONT
     Route: 015
     Dates: start: 20120803, end: 20120803
  2. MIRENA [Suspect]
     Indication: MENSTRUAL CYCLE MANAGEMENT
     Dosage: 20 mcg/24hr, CONT
     Route: 015
     Dates: start: 20120824

REACTIONS (3)
  - Device expulsion [Recovered/Resolved]
  - Discomfort [Recovered/Resolved]
  - Product shape issue [Recovered/Resolved]
